FAERS Safety Report 4480897-X (Version None)
Quarter: 2004Q4

REPORT INFORMATION
  Report Type: 
  Country: None (occurrence: None)
  Receive Date: 20041019
  Receipt Date: 20041008
  Transmission Date: 20050328
  Serious: Yes (Hospitalization)
  Sender: FDA-Public Use
  Company Number: 200420802BWH

PATIENT
  Age: 58 Year
  Sex: Male

DRUGS (1)
  1. LEVITRA [Suspect]
     Indication: ERECTILE DYSFUNCTION
     Dosage: 10 MG, QD, ORAL
     Route: 048

REACTIONS (2)
  - DRUG EFFECT DECREASED [None]
  - GALLBLADDER PERFORATION [None]
